FAERS Safety Report 5477116-4 (Version None)
Quarter: 2007Q3

REPORT INFORMATION
  Report Type: 
  Country: None (occurrence: None)
  Receive Date: 20070904
  Receipt Date: 20070709
  Transmission Date: 20080115
  Serious: No
  Sender: FDA-Public Use
  Company Number: PHEH2007US06005

PATIENT
  Age: 80 Year
  Sex: Female

DRUGS (8)
  1. ENABLEX [Suspect]
     Indication: HYPERTONIC BLADDER
     Dosage: 7.5 MG, QHS, ORAL; 15 MG, QHS, ORAL; 7.5 MG, QHS, ORAL
     Route: 048
     Dates: start: 20060719, end: 20060819
  2. ENABLEX [Suspect]
     Indication: HYPERTONIC BLADDER
     Dosage: 7.5 MG, QHS, ORAL; 15 MG, QHS, ORAL; 7.5 MG, QHS, ORAL
     Route: 048
     Dates: start: 20060901, end: 20070101
  3. ENABLEX [Suspect]
     Indication: HYPERTONIC BLADDER
     Dosage: 7.5 MG, QHS, ORAL; 15 MG, QHS, ORAL; 7.5 MG, QHS, ORAL
     Route: 048
     Dates: start: 20070326
  4. LIPITOR [Concomitant]
  5. VITAMINS (NO INGREDIENTS/SUBSTANCES) [Concomitant]
  6. BONIVA (IBANDRONATE SODIUM) [Concomitant]
  7. XANAX [Concomitant]
  8. NEXIUM [Concomitant]

REACTIONS (4)
  - BLOOD POTASSIUM INCREASED [None]
  - CONSTIPATION [None]
  - DRUG INEFFECTIVE [None]
  - DRY MOUTH [None]
